FAERS Safety Report 19126977 (Version 1)
Quarter: 2021Q2

REPORT INFORMATION
  Report Type: Spontaneous
  Country: US (occurrence: US)
  Receive Date: 20210413
  Receipt Date: 20210413
  Transmission Date: 20210717
  Serious: No
  Sender: FDA-Public Use
  Company Number: US-ALLERGAN-2021041US

PATIENT
  Age: 85 Year
  Sex: Female
  Weight: 45.81 kg

DRUGS (3)
  1. RHOPRESSA [Suspect]
     Active Substance: NETARSUDIL MESYLATE
     Indication: NORMAL TENSION GLAUCOMA
     Dosage: 2 GTT, QHS
     Route: 047
     Dates: start: 201905, end: 20200517
  2. LUMIGAN [Suspect]
     Active Substance: BIMATOPROST
     Indication: NORMAL TENSION GLAUCOMA
     Dosage: 2 GTT, QHS
     Route: 047
     Dates: start: 2000
  3. FISH OIL [Concomitant]
     Active Substance: FISH OIL
     Dosage: 1 DF, QAM
     Route: 048
     Dates: start: 2005

REACTIONS (1)
  - Visual acuity reduced [Not Recovered/Not Resolved]

NARRATIVE: CASE EVENT DATE: 202003
